FAERS Safety Report 4777208-9 (Version None)
Quarter: 2005Q3

REPORT INFORMATION
  Report Type: 
  Country: None (occurrence: None)
  Receive Date: 20050915
  Receipt Date: 20050831
  Transmission Date: 20060218
  Serious: Yes (Other)
  Sender: FDA-Public Use
  Company Number: 12185

PATIENT
  Age: 35 Year
  Sex: Female
  Weight: 86.4 kg

DRUGS (7)
  1. VINCRISTINE [Suspect]
     Indication: GLIOMA
     Dosage: 2 MG PER_CYCLE, IV
     Route: 042
     Dates: start: 20050712
  2. VINCRISTINE [Suspect]
     Indication: GLIOMA
     Dosage: 1 MG PER_CYCLE, IV
     Route: 042
     Dates: start: 20050826
  3. LOMUSTINE [Concomitant]
  4. PROCARBAZINE [Concomitant]
  5. CARBAMAZEPINE [Concomitant]
  6. GRANISETRON [Concomitant]
  7. DEXAMETHASONE [Concomitant]

REACTIONS (2)
  - CONVULSION [None]
  - STATUS EPILEPTICUS [None]
